FAERS Safety Report 16472964 (Version 1)
Quarter: 2019Q2

REPORT INFORMATION
  Report Type: Spontaneous
  Country: SK (occurrence: SK)
  Receive Date: 20190625
  Receipt Date: 20190625
  Transmission Date: 20190711
  Serious: Yes (Hospitalization)
  Sender: FDA-Public Use
  Company Number: SK-BAXTER-2019BAX012065

PATIENT
  Age: 80 Year
  Sex: Male

DRUGS (8)
  1. SODIUM CHLORIDE 0,9% W/V INTRAVENOUS INFUSION BIEFFE [Suspect]
     Active Substance: SODIUM CHLORIDE
     Indication: MEDICATION DILUTION
     Dosage: ISOTONIC SOLUTION
     Route: 042
     Dates: start: 20190612
  2. HYDROCORTISONE. [Suspect]
     Active Substance: HYDROCORTISONE
     Indication: BODY TEMPERATURE INCREASED
     Route: 042
     Dates: start: 20190612
  3. HYDROCORTISONE. [Suspect]
     Active Substance: HYDROCORTISONE
     Indication: TACHYCARDIA
  4. CALCIUM [Suspect]
     Active Substance: CALCIUM
     Indication: TACHYCARDIA
  5. HYDROCORTISONE. [Suspect]
     Active Substance: HYDROCORTISONE
     Indication: CHILLS
  6. PLASMALYTE [Suspect]
     Active Substance: ELECTROLYTES NOS
     Indication: FLUID REPLACEMENT
     Dosage: 10*1000ML (VAK POF/PA)
     Route: 042
     Dates: start: 20190612, end: 20190612
  7. CALCIUM [Suspect]
     Active Substance: CALCIUM
     Indication: BODY TEMPERATURE INCREASED
     Dosage: ONE AMPOULE
     Route: 042
     Dates: start: 20190612
  8. CALCIUM [Suspect]
     Active Substance: CALCIUM
     Indication: CHILLS

REACTIONS (4)
  - Body temperature increased [Recovered/Resolved]
  - Tachycardia [Recovered/Resolved]
  - Pulmonary oedema [Recovered/Resolved]
  - Chills [Recovered/Resolved]

NARRATIVE: CASE EVENT DATE: 20190612
